FAERS Safety Report 23785845 (Version 2)
Quarter: 2024Q2

REPORT INFORMATION
  Report Type: Spontaneous
  Country: US (occurrence: US)
  Receive Date: 20240425
  Receipt Date: 20240619
  Transmission Date: 20240716
  Serious: Yes (Other)
  Sender: FDA-Public Use
  Company Number: US-SA-SAC20240418001182

PATIENT
  Age: 50 Year
  Sex: Female

DRUGS (2)
  1. DUPIXENT [Suspect]
     Active Substance: DUPILUMAB
     Indication: Eosinophilic oesophagitis
     Dosage: 300MG, QW
     Route: 058
     Dates: start: 202401, end: 2024
  2. TRETINOIN [Suspect]
     Active Substance: TRETINOIN
     Dosage: UNK

REACTIONS (2)
  - Spinal fusion surgery [Unknown]
  - Erythema [Unknown]

NARRATIVE: CASE EVENT DATE: 20240101
